FAERS Safety Report 10512805 (Version 2)
Quarter: 2014Q4

REPORT INFORMATION
  Report Type: Report from Study
  Country: US (occurrence: US)
  Receive Date: 20141013
  Receipt Date: 20141020
  Transmission Date: 20150528
  Serious: Yes (Hospitalization, Other)
  Sender: FDA-Public Use
  Company Number: US-AMGEN-USASL2014077413

PATIENT
  Age: 79 Year
  Sex: Female
  Weight: 60.5 kg

DRUGS (19)
  1. GABAPENTIN. [Concomitant]
     Active Substance: GABAPENTIN
     Dosage: 400 MG, TWO TABS BY NOUTH DAILY
     Route: 048
  2. PREDNISONE. [Concomitant]
     Active Substance: PREDNISONE
     Dosage: UNK
     Route: 065
  3. PROLIA [Concomitant]
     Active Substance: DENOSUMAB
     Dosage: 60 MG INTO THE SKIN ONCE
     Route: 058
  4. TYLENOL ARTHRITIS PAIN [Concomitant]
     Active Substance: ACETAMINOPHEN
     Dosage: 650 MG, 2 TABS Q8H
     Route: 048
  5. VERAPAMIL [Concomitant]
     Active Substance: VERAPAMIL HYDROCHLORIDE
     Dosage: 240 MG, 1TABLET DAILY
     Route: 048
  6. FISH OIL W/VITAMIN E NOS [Concomitant]
     Dosage: 1000 MG,DAILY
     Route: 048
  7. ARAVA [Concomitant]
     Active Substance: LEFLUNOMIDE
     Dosage: 20 MG, 1 TABLET BY MOUTH DAILY
     Route: 048
     Dates: start: 20141006
  8. NEXIUM [Concomitant]
     Active Substance: ESOMEPRAZOLE MAGNESIUM
     Dosage: 1 TAB DAILY
     Route: 048
  9. PRILOSEC [Concomitant]
     Active Substance: OMEPRAZOLE MAGNESIUM
     Dosage: 20 MG, DAILY
     Route: 048
  10. ENBREL [Suspect]
     Active Substance: ETANERCEPT
     Indication: RHEUMATOID ARTHRITIS
     Dosage: 50 MG, QWK
     Route: 058
     Dates: start: 20131120
  11. IRON                               /00023503/ [Concomitant]
     Active Substance: IRON
     Dosage: 325 MG, (65 MG IRON) DAILY
     Route: 048
  12. DELTASONE                          /00044701/ [Concomitant]
     Dosage: 5 MG, 1 TABLET DAILY
     Route: 048
  13. AFLURIA [Concomitant]
     Active Substance: INFLUENZA VIRUS VACCINE TRIVALENT TYPE A+B AFLURIA
     Dosage: UNK
     Dates: start: 20141006
  14. CALCIUM [Concomitant]
     Active Substance: CALCIUM
     Dosage: 600 MG 2 TABS TWICE DAILY
  15. CENTRUM ULTRA WOMENS [Concomitant]
     Dosage: 18-0.4 MG 1 TABLET BY MOUTH DAILY
     Route: 048
  16. ZOLOFT [Concomitant]
     Active Substance: SERTRALINE HYDROCHLORIDE
     Dosage: 25 MG, AT BEDTIME
     Route: 048
  17. METHOTREXATE [Concomitant]
     Active Substance: METHOTREXATE
     Dosage: UNK
  18. FOLVITE                            /00024201/ [Concomitant]
     Dosage: 1 MG, 1 TABLET BY MOUTH DAILY
     Route: 048
  19. LISINOPRIL. [Concomitant]
     Active Substance: LISINOPRIL
     Dosage: 20 MG, ONE TABLET BY MOUTH DAILY
     Route: 048

REACTIONS (11)
  - No therapeutic response [Unknown]
  - Muscle atrophy [Unknown]
  - Joint dislocation [Unknown]
  - Urosepsis [Unknown]
  - Joint stiffness [Not Recovered/Not Resolved]
  - Urinary retention [Unknown]
  - Arthralgia [Unknown]
  - Osteopenia [Unknown]
  - Mobility decreased [Unknown]
  - Cataract [Not Recovered/Not Resolved]
  - Urinary tract infection [Unknown]

NARRATIVE: CASE EVENT DATE: 20141006
